FAERS Safety Report 10167064 (Version 1)
Quarter: 2014Q2

REPORT INFORMATION
  Report Type: Spontaneous
  Country: FR (occurrence: FR)
  Receive Date: 20140512
  Receipt Date: 20140512
  Transmission Date: 20141212
  Serious: Yes (Other)
  Sender: FDA-Public Use
  Company Number: PHHY2014FR054769

PATIENT
  Age: 55 Year
  Sex: Male

DRUGS (6)
  1. OXALIPLATIN [Suspect]
     Indication: RECTAL ADENOCARCINOMA
  2. FOLINIC ACID [Suspect]
     Indication: RECTAL ADENOCARCINOMA
  3. 5-FLUOROURACIL [Suspect]
     Indication: RECTAL ADENOCARCINOMA
  4. IRINOTECAN [Suspect]
     Indication: RECTAL ADENOCARCINOMA
  5. CAPECITABINE [Suspect]
     Indication: RECTAL ADENOCARCINOMA
     Dates: start: 201110, end: 201201
  6. BEVACIZUMAB [Suspect]
     Indication: RECTAL ADENOCARCINOMA

REACTIONS (10)
  - Haemolytic anaemia [Unknown]
  - Haematuria [Unknown]
  - Pyrexia [Unknown]
  - Chromaturia [Unknown]
  - Back pain [Unknown]
  - Chills [Unknown]
  - Neuropathy peripheral [Unknown]
  - Metastases to liver [Unknown]
  - Metastases to lymph nodes [Unknown]
  - Drug effect incomplete [Unknown]
